FAERS Safety Report 4894525-2 (Version None)
Quarter: 2006Q1

REPORT INFORMATION
  Report Type: 
  Country: None (occurrence: None)
  Receive Date: 20060127
  Receipt Date: 20060119
  Transmission Date: 20060701
  Serious: Yes (Other)
  Sender: FDA-Public Use
  Company Number: PE-ABBOTT-06P-127-0323256-00

PATIENT
  Age: 38 Year
  Sex: Female
  Weight: 68 kg

DRUGS (3)
  1. KALETRA [Suspect]
     Indication: HIV INFECTION
     Route: 048
     Dates: start: 20051017
  2. ZIDOVUDINE [Concomitant]
     Route: 048
     Dates: start: 20051001
  3. LAMIVUDINE [Concomitant]
     Route: 048
     Dates: start: 20051001

REACTIONS (1)
  - ABORTION SPONTANEOUS [None]
